FAERS Safety Report 25952407 (Version 2)
Quarter: 2025Q4

REPORT INFORMATION
  Report Type: Report from Study
  Country: US (occurrence: US)
  Receive Date: 20251023
  Receipt Date: 20251024
  Transmission Date: 20260118
  Serious: Yes (Hospitalization, Other)
  Sender: MERCK SHARP & DOHME LLC
  Company Number: US-009507513-2341913

PATIENT
  Sex: Female
  Weight: 48.988 kg

DRUGS (25)
  1. WINREVAIR [Suspect]
     Active Substance: SOTATERCEPT-CSRK
     Indication: Pulmonary arterial hypertension
     Dosage: ^DOSE INJECT 0.7MLS SUBCUTANEOUSLY^/^Q3W^
     Route: 058
     Dates: start: 2025
  2. WINREVAIR [Suspect]
     Active Substance: SOTATERCEPT-CSRK
  3. WINREVAIR [Suspect]
     Active Substance: SOTATERCEPT-CSRK
  4. WINREVAIR [Suspect]
     Active Substance: SOTATERCEPT-CSRK
  5. OMEPRAZOLE [Concomitant]
     Active Substance: OMEPRAZOLE
  6. PENTOXIFYLLINE [Concomitant]
     Active Substance: PENTOXIFYLLINE
  7. ADEMPAS [Concomitant]
     Active Substance: RIOCIGUAT
  8. CARVEDILOL [Concomitant]
     Active Substance: CARVEDILOL
  9. JARDIANCE [Concomitant]
     Active Substance: EMPAGLIFLOZIN
  10. FOLIC ACID [Concomitant]
     Active Substance: FOLIC ACID
  11. TREPROSTINIL DIOLAMINE [Concomitant]
     Active Substance: TREPROSTINIL DIOLAMINE
  12. OPSUMIT [Concomitant]
     Active Substance: MACITENTAN
  13. ENTRESTO [Concomitant]
     Active Substance: SACUBITRIL\VALSARTAN
  14. CINACALCET HYDROCHLORIDE [Concomitant]
     Active Substance: CINACALCET HYDROCHLORIDE
  15. HYDROXYCHLOROQUINE SULFATE [Concomitant]
     Active Substance: HYDROXYCHLOROQUINE SULFATE
  16. TRELEGY ELLIPTA [Concomitant]
     Active Substance: FLUTICASONE FUROATE\UMECLIDINIUM BROMIDE\VILANTEROL TRIFENATATE
  17. FLONASE ALLERGY RELIEF [Concomitant]
     Active Substance: FLUTICASONE PROPIONATE
  18. OFEV [Concomitant]
     Active Substance: NINTEDANIB
  19. SIMVASTATIN [Concomitant]
     Active Substance: SIMVASTATIN
  20. OXYGEN [Concomitant]
     Active Substance: OXYGEN
  21. ASPIRIN [Concomitant]
     Active Substance: ASPIRIN
  22. METFORMIN HYDROCHLORIDE [Concomitant]
     Active Substance: METFORMIN HYDROCHLORIDE
  23. FUROSEMIDE [Concomitant]
     Active Substance: FUROSEMIDE
  24. JANUVIA [Concomitant]
     Active Substance: SITAGLIPTIN PHOSPHATE
  25. GABAPENTIN [Concomitant]
     Active Substance: GABAPENTIN

REACTIONS (3)
  - Haematochezia [Unknown]
  - Haemoglobin decreased [Unknown]
  - Inappropriate schedule of product administration [Unknown]

NARRATIVE: CASE EVENT DATE: 20250101
